FAERS Safety Report 8902024 (Version 1)
Quarter: 2012Q4

REPORT INFORMATION
  Report Type: 
  Country: BR (occurrence: BR)
  Receive Date: 20121112
  Receipt Date: 20121112
  Transmission Date: 20130627
  Serious: Yes (Other)
  Sender: FDA-Public Use
  Company Number: BR-ELI_LILLY_AND_COMPANY-BR201211001168

PATIENT
  Sex: Male
  Weight: 38.9 kg

DRUGS (6)
  1. FORTEO [Suspect]
     Indication: OSTEOPOROSIS
     Dosage: UNK, qd
     Route: 058
     Dates: start: 20120201
  2. SPIRIVA [Concomitant]
     Indication: EMPHYSEMA
     Dosage: UNK, unknown
     Route: 065
  3. ALENIA [Concomitant]
     Indication: EMPHYSEMA
  4. BAMIFIX [Concomitant]
     Indication: EMPHYSEMA
     Dosage: UNK, unknown
     Route: 065
  5. OMEPRAZOL [Concomitant]
     Indication: GASTRIC DISORDER
     Dosage: UNK, unknown
     Route: 065
  6. CALCIUM [Concomitant]
     Indication: OSTEOPOROSIS
     Dosage: UNK, unknown
     Route: 065

REACTIONS (1)
  - Weight decreased [Recovering/Resolving]
